FAERS Safety Report 9553435 (Version 2)
Quarter: 2013Q4

REPORT INFORMATION
  Report Type: Spontaneous
  Country: FI (occurrence: FI)
  Receive Date: 20130925
  Receipt Date: 20131213
  Transmission Date: 20140711
  Serious: Yes (Disabling, Other)
  Sender: FDA-Public Use
  Company Number: FI-PFIZER INC-2013273202

PATIENT
  Age: 51 Year
  Sex: Male

DRUGS (1)
  1. CHAMPIX [Suspect]
     Indication: NICOTINE DEPENDENCE
     Dosage: UNK
     Dates: start: 200809, end: 200812

REACTIONS (8)
  - Dizziness [Not Recovered/Not Resolved]
  - Fear [Not Recovered/Not Resolved]
  - Panic disorder [Not Recovered/Not Resolved]
  - Fatigue [Not Recovered/Not Resolved]
  - Depression [Not Recovered/Not Resolved]
  - Disturbance in attention [Not Recovered/Not Resolved]
  - Emotional distress [Not Recovered/Not Resolved]
  - Obsessive-compulsive disorder [Not Recovered/Not Resolved]
